FAERS Safety Report 19872045 (Version 1)
Quarter: 2021Q3

REPORT INFORMATION
  Report Type: Spontaneous
  Country: US (occurrence: US)
  Receive Date: 20210923
  Receipt Date: 20210923
  Transmission Date: 20211014
  Serious: Yes (Life-Threatening, Other)
  Sender: FDA-Public Use
  Company Number: None

PATIENT
  Age: 429 Month
  Sex: Male
  Weight: 98.1 kg

DRUGS (4)
  1. GENERIC PAXIL [Concomitant]
     Active Substance: PAROXETINE HYDROCHLORIDE
  2. BIKTARVY [Suspect]
     Active Substance: BICTEGRAVIR SODIUM\EMTRICITABINE\TENOFOVIR ALAFENAMIDE FUMARATE
     Indication: ANTIVIRAL TREATMENT
     Dosage: ?          QUANTITY:1 TABLET(S);?
     Route: 048
     Dates: start: 20210517, end: 20210920
  3. GENERIC DEPAKOTE [Concomitant]
     Active Substance: DIVALPROEX SODIUM
  4. VYVANSE [Concomitant]
     Active Substance: LISDEXAMFETAMINE DIMESYLATE

REACTIONS (7)
  - Skin infection [None]
  - Weight decreased [None]
  - Manufacturing process control procedure issue [None]
  - Product quality issue [None]
  - Product quality control issue [None]
  - Unevaluable event [None]
  - Product physical issue [None]

NARRATIVE: CASE EVENT DATE: 20210920
